FAERS Safety Report 8934897 (Version 2)
Quarter: 2013Q2

REPORT INFORMATION
  Report Type: Spontaneous
  Country: US (occurrence: US)
  Receive Date: 20121129
  Receipt Date: 20130424
  Transmission Date: 20140414
  Serious: Yes (Death)
  Sender: FDA-Public Use
  Company Number: US-009507513-1211USA011666

PATIENT
  Sex: Female

DRUGS (1)
  1. EMEND [Suspect]
     Indication: CHEMOTHERAPY
     Route: 042

REACTIONS (1)
  - Death [Fatal]
